FAERS Safety Report 11317271 (Version 1)
Quarter: 2015Q3

REPORT INFORMATION
  Report Type: Spontaneous
  Country: US (occurrence: US)
  Receive Date: 20150728
  Receipt Date: 20150728
  Transmission Date: 20151125
  Serious: Yes (Other)
  Sender: FDA-Public Use
  Company Number: US-CELGENEUS-USA-2015072565

PATIENT
  Age: 73 Year
  Sex: Male
  Weight: 105.33 kg

DRUGS (10)
  1. GEMFIBROZIL. [Concomitant]
     Active Substance: GEMFIBROZIL
     Indication: PRODUCT USED FOR UNKNOWN INDICATION
     Route: 065
  2. NOVOLOG [Concomitant]
     Active Substance: INSULIN ASPART
     Indication: PRODUCT USED FOR UNKNOWN INDICATION
     Route: 065
  3. REVLIMID [Suspect]
     Active Substance: LENALIDOMIDE
     Indication: PLASMA CELL MYELOMA
     Route: 048
     Dates: start: 20150614
  4. REVLIMID [Suspect]
     Active Substance: LENALIDOMIDE
     Route: 048
     Dates: start: 201507
  5. VITAMIN D3 [Concomitant]
     Active Substance: CHOLECALCIFEROL
     Indication: PRODUCT USED FOR UNKNOWN INDICATION
     Route: 065
  6. SIMVASTATIN. [Concomitant]
     Active Substance: SIMVASTATIN
     Indication: PRODUCT USED FOR UNKNOWN INDICATION
     Route: 065
  7. LEVEMIR [Concomitant]
     Active Substance: INSULIN DETEMIR
     Indication: PRODUCT USED FOR UNKNOWN INDICATION
     Route: 065
  8. PIOGLITAZONE. [Concomitant]
     Active Substance: PIOGLITAZONE
     Indication: PRODUCT USED FOR UNKNOWN INDICATION
     Route: 065
  9. OMEPRAZOLE. [Concomitant]
     Active Substance: OMEPRAZOLE
     Indication: PRODUCT USED FOR UNKNOWN INDICATION
     Route: 065
  10. ASA [Concomitant]
     Active Substance: ASPIRIN
     Indication: PRODUCT USED FOR UNKNOWN INDICATION
     Route: 065

REACTIONS (2)
  - Pulmonary oedema [Recovered/Resolved]
  - Oedema peripheral [Recovered/Resolved]

NARRATIVE: CASE EVENT DATE: 201507
